FAERS Safety Report 6886123-6 (Version None)
Quarter: 2010Q3

REPORT INFORMATION
  Report Type: 
  Country: None (occurrence: None)
  Receive Date: 20100729
  Receipt Date: 20080120
  Transmission Date: 20110219
  Serious: No
  Sender: FDA-Public Use
  Company Number: US-PFIZER INC-2008005849

PATIENT
  Sex: Female

DRUGS (5)
  1. CELEBREX [Suspect]
     Indication: ARTHRITIS
     Dates: start: 20071201
  2. MONOPRIL [Concomitant]
  3. NORVASC [Concomitant]
  4. COUMADIN [Concomitant]
  5. INSULIN [Concomitant]

REACTIONS (1)
  - PRURITUS [None]
